FAERS Safety Report 20496836 (Version 1)
Quarter: 2022Q1

REPORT INFORMATION
  Report Type: Spontaneous
  Country: SE (occurrence: SE)
  Receive Date: 20220221
  Receipt Date: 20220221
  Transmission Date: 20220423
  Serious: Yes (Disabling)
  Sender: FDA-Public Use
  Company Number: None

PATIENT
  Age: 76 Year
  Sex: Female
  Weight: 88 kg

DRUGS (2)
  1. ACLASTA [Suspect]
     Active Substance: ZOLEDRONIC ACID
     Indication: Osteoporosis
     Dosage: 5 MG, Q12MO
     Route: 042
     Dates: start: 20220120
  2. OMEPRAZOL APOFRI [Concomitant]
     Indication: Product used for unknown indication
     Dosage: ENTEROKAPSEL, H?RD
     Route: 048

REACTIONS (23)
  - Neck pain [Unknown]
  - Discomfort [Unknown]
  - Eye inflammation [Unknown]
  - Thirst [Unknown]
  - Blood pressure increased [Unknown]
  - Eye pain [Unknown]
  - Blood pressure decreased [Unknown]
  - Back pain [Unknown]
  - Eye infection [Unknown]
  - Pain in jaw [Unknown]
  - Oral pain [Unknown]
  - Eye pruritus [Unknown]
  - Hyperhidrosis [Unknown]
  - Myalgia [Unknown]
  - Atrial fibrillation [Unknown]
  - Asthenia [Unknown]
  - Fatigue [Unknown]
  - Tremor [Unknown]
  - Arthralgia [Unknown]
  - Malaise [Unknown]
  - Dry mouth [Unknown]
  - Pyrexia [Unknown]
  - Chills [Unknown]

NARRATIVE: CASE EVENT DATE: 20220209
